FAERS Safety Report 18676759 (Version 1)
Quarter: 2020Q4

REPORT INFORMATION
  Report Type: Spontaneous
  Country: JP (occurrence: JP)
  Receive Date: 20201229
  Receipt Date: 20201229
  Transmission Date: 20210114
  Serious: Yes (Death)
  Sender: FDA-Public Use
  Company Number: JP-MYLANLABS-2020M1104920

PATIENT
  Sex: Male

DRUGS (9)
  1. RISPERIDONE. [Interacting]
     Active Substance: RISPERIDONE
     Indication: SCHIZOPHRENIA
     Route: 065
  2. OLANZAPINE. [Suspect]
     Active Substance: OLANZAPINE
     Indication: SCHIZOPHRENIA
     Route: 065
  3. AKINETON [Interacting]
     Active Substance: BIPERIDEN HYDROCHLORIDE
     Indication: SCHIZOPHRENIA
     Route: 065
  4. LEXAPRO [Interacting]
     Active Substance: ESCITALOPRAM OXALATE
     Indication: SCHIZOPHRENIA
     Route: 065
  5. CERCINE [Interacting]
     Active Substance: DIAZEPAM
     Indication: SCHIZOPHRENIA
     Route: 065
  6. CAFFEINE. [Interacting]
     Active Substance: CAFFEINE
     Indication: PRODUCT USED FOR UNKNOWN INDICATION
     Route: 048
  7. ABILIFY [Interacting]
     Active Substance: ARIPIPRAZOLE
     Indication: SCHIZOPHRENIA
     Route: 065
  8. FLUNITRAZEPAM [Interacting]
     Active Substance: FLUNITRAZEPAM
     Indication: SCHIZOPHRENIA
     Route: 065
  9. LUNESTA [Interacting]
     Active Substance: ESZOPICLONE
     Indication: SCHIZOPHRENIA
     Route: 065

REACTIONS (14)
  - Intentional overdose [Fatal]
  - Toxicity to various agents [Fatal]
  - Loss of consciousness [Fatal]
  - Apnoea [Fatal]
  - Pulse absent [Fatal]
  - Cardiac arrest [Fatal]
  - Vomiting [Fatal]
  - Circulatory collapse [Fatal]
  - Drug interaction [Fatal]
  - Gait disturbance [Fatal]
  - Ventricular fibrillation [Fatal]
  - Pain [Fatal]
  - Completed suicide [Fatal]
  - Malaise [Fatal]
